FAERS Safety Report 8204376-9 (Version None)
Quarter: 2012Q1

REPORT INFORMATION
  Report Type: 
  Country: None (occurrence: None)
  Receive Date: 20120313
  Receipt Date: 20120313
  Transmission Date: 20120608
  Serious: Yes (Other)
  Sender: FDA-Public Use
  Company Number: None

PATIENT
  Age: 65 Year
  Sex: Female
  Weight: 57.152 kg

DRUGS (1)
  1. FLUCONAZOLE [Suspect]
     Indication: VULVOVAGINAL CANDIDIASIS
     Dosage: 150 MG
     Route: 048
     Dates: start: 20120110, end: 20120312

REACTIONS (3)
  - RASH [None]
  - PRODUCT SUBSTITUTION ISSUE [None]
  - URTICARIA [None]
